FAERS Safety Report 14984246 (Version 1)
Quarter: 2018Q2

REPORT INFORMATION
  Report Type: Spontaneous
  Country: US (occurrence: US)
  Receive Date: 20180515
  Receipt Date: 20180515
  Transmission Date: 20180711
  Serious: No
  Sender: FDA-Public Use
  Company Number: None

PATIENT
  Age: 12 Year
  Sex: Female
  Weight: 45.36 kg

DRUGS (1)
  1. REMERON [Suspect]
     Active Substance: MIRTAZAPINE

REACTIONS (4)
  - Device computer issue [None]
  - Transcription medication error [None]
  - Drug dispensing error [None]
  - Wrong drug administered [None]

NARRATIVE: CASE EVENT DATE: 20180510
